FAERS Safety Report 24190130 (Version 1)
Quarter: 2024Q3

REPORT INFORMATION
  Report Type: Report from Study
  Country: IN (occurrence: IN)
  Receive Date: 20240808
  Receipt Date: 20240808
  Transmission Date: 20241017
  Serious: Yes (Death, Hospitalization, Other)
  Sender: ROCHE
  Company Number: IN-ROCHE-10000041063

PATIENT
  Age: 38 Year
  Sex: Male

DRUGS (4)
  1. CELLCEPT [Suspect]
     Active Substance: MYCOPHENOLATE MOFETIL
     Indication: Renal transplant
     Dosage: 750MG-0-500MG
     Route: 048
     Dates: start: 20201215, end: 20240613
  2. TACROLIMUS [Concomitant]
     Active Substance: TACROLIMUS
  3. PREDNISOLONE [Concomitant]
     Active Substance: PREDNISOLONE
  4. Septran [Concomitant]

REACTIONS (4)
  - Red blood cell count decreased [Not Recovered/Not Resolved]
  - Cardiac arrest [Fatal]
  - Asthenia [Unknown]
  - Neoplasm malignant [Unknown]

NARRATIVE: CASE EVENT DATE: 20240606
